FAERS Safety Report 22656291 (Version 1)
Quarter: 2023Q2

REPORT INFORMATION
  Report Type: Spontaneous
  Country: US (occurrence: US)
  Receive Date: 20230629
  Receipt Date: 20230629
  Transmission Date: 20230722
  Serious: No
  Sender: FDA-Public Use
  Company Number: US-VIRTUS PHARMACEUTICALS, LLC-2022VTS00030

PATIENT
  Age: 46 Year
  Sex: Female

DRUGS (2)
  1. PROMETRIUM [Suspect]
     Active Substance: PROGESTERONE
     Route: 048
  2. PROVERA [Suspect]
     Active Substance: MEDROXYPROGESTERONE ACETATE
     Route: 048

REACTIONS (4)
  - Vaginal haemorrhage [Unknown]
  - Depression [Unknown]
  - Mood swings [Unknown]
  - Alopecia [Unknown]
